FAERS Safety Report 7713357-0 (Version None)
Quarter: 2011Q3

REPORT INFORMATION
  Report Type: 
  Country: None (occurrence: None)
  Receive Date: 20110826
  Receipt Date: 20110511
  Transmission Date: 20111222
  Serious: No
  Sender: FDA-Public Use
  Company Number: US-BAYER-2011-041607

PATIENT
  Age: 57 Year
  Sex: Male

DRUGS (1)
  1. MAGNEVIST [Suspect]
     Indication: NUCLEAR MAGNETIC RESONANCE IMAGING THORACIC
     Dosage: 42 ML, UNK
     Route: 042
     Dates: start: 20110511, end: 20110511

REACTIONS (1)
  - URTICARIA [None]
